FAERS Safety Report 5470044-X (Version None)
Quarter: 2007Q3

REPORT INFORMATION
  Report Type: 
  Country: None (occurrence: None)
  Receive Date: 20070927
  Receipt Date: 20070918
  Transmission Date: 20080115
  Serious: No
  Sender: FDA-Public Use
  Company Number: US-BOEHRINGER INGELHEIM PHARMACEUTICALS, INC.-2007-BP-21254BP

PATIENT
  Sex: Male

DRUGS (3)
  1. FLOMAX [Suspect]
     Indication: BENIGN PROSTATIC HYPERPLASIA
     Route: 048
     Dates: start: 20050101
  2. GLYBURIDE [Concomitant]
     Indication: DIABETES MELLITUS
  3. CLINAPRIL [Concomitant]
     Indication: BLOOD PRESSURE INCREASED

REACTIONS (1)
  - DRUG INEFFECTIVE [None]
